FAERS Safety Report 7065474-9 (Version None)
Quarter: 2010Q4

REPORT INFORMATION
  Report Type: 
  Country: None (occurrence: None)
  Receive Date: 20101027
  Receipt Date: 20101017
  Transmission Date: 20110411
  Serious: No
  Sender: FDA-Public Use
  Company Number: US-PFIZER INC-2010131684

PATIENT
  Sex: Female

DRUGS (2)
  1. LYRICA [Suspect]
     Indication: NEURALGIA
     Dosage: 100 MG, 2X/DAY
     Route: 048
     Dates: start: 20100101
  2. ACETAMINOPHEN, ASPIRIN, AND CODEINE PHOSPHATE [Concomitant]
     Indication: PAIN
     Dosage: UNK

REACTIONS (1)
  - HYPERHIDROSIS [None]
